FAERS Safety Report 19015180 (Version 1)
Quarter: 2021Q1

REPORT INFORMATION
  Report Type: Spontaneous
  Country: CA (occurrence: CA)
  Receive Date: 20210316
  Receipt Date: 20210316
  Transmission Date: 20210420
  Serious: Yes (Hospitalization, Other)
  Sender: FDA-Public Use
  Company Number: CA-HRAPH01-201900292

PATIENT
  Age: 78 Year
  Sex: Female

DRUGS (2)
  1. LYSODREN [Suspect]
     Active Substance: MITOTANE
     Indication: ADRENOCORTICAL CARCINOMA
     Route: 048
     Dates: start: 20180320, end: 20210227
  2. HYDROCORTISONE. [Concomitant]
     Active Substance: HYDROCORTISONE
     Indication: ADRENALECTOMY
     Dosage: 20 MG IN THE MORNING AND 10 MG AT DINNER TIME
     Dates: start: 20171208

REACTIONS (2)
  - Hyponatraemia [Recovered/Resolved]
  - Pulmonary embolism [Recovered/Resolved]

NARRATIVE: CASE EVENT DATE: 201808
